FAERS Safety Report 9479402 (Version 3)
Quarter: 2013Q4

REPORT INFORMATION
  Report Type: Spontaneous
  Country: US (occurrence: US)
  Receive Date: 20130827
  Receipt Date: 20131023
  Transmission Date: 20140711
  Serious: No
  Sender: FDA-Public Use
  Company Number: US-PFIZER INC-2013242875

PATIENT
  Age: 69 Year
  Sex: Female

DRUGS (1)
  1. PREMPRO [Suspect]
     Dosage: 1 DF (0.625 MG ESTROGENS CONJUGATED/2.5 MG MEDROXYPROGESTERONE ACETATE), 1X/DAY

REACTIONS (3)
  - Hair growth abnormal [Unknown]
  - Therapeutic response unexpected [Unknown]
  - Drug ineffective [Unknown]
